FAERS Safety Report 12552927 (Version 1)
Quarter: 2016Q3

REPORT INFORMATION
  Report Type: Spontaneous
  Country: US (occurrence: US)
  Receive Date: 20160713
  Receipt Date: 20160713
  Transmission Date: 20161109
  Serious: Yes (Hospitalization)
  Sender: FDA-Public Use
  Company Number: US-HORIZON-BUP-0073-2016

PATIENT
  Age: 15 Year
  Sex: Male

DRUGS (3)
  1. PRO-PHREE [Concomitant]
  2. CYCLINEX 2 [Concomitant]
  3. BUPHENYL [Suspect]
     Active Substance: SODIUM PHENYLBUTYRATE
     Indication: ARGINASE DEFICIENCY
     Dosage: 6 TABLETS 5 TIMES A DAY
     Route: 048

REACTIONS (4)
  - Viral infection [Unknown]
  - Decreased appetite [Recovered/Resolved]
  - Vomiting [Unknown]
  - Hyperammonaemic crisis [Unknown]

NARRATIVE: CASE EVENT DATE: 201604
